FAERS Safety Report 6800567-X (Version None)
Quarter: 2010Q2

REPORT INFORMATION
  Report Type: 
  Country: None (occurrence: None)
  Receive Date: 20100625
  Receipt Date: 20100625
  Transmission Date: 20101027
  Serious: Yes (Other)
  Sender: FDA-Public Use
  Company Number: None

PATIENT
  Sex: Male

DRUGS (7)
  1. SUDOGEST 30 MG TABLETS [Suspect]
     Indication: NASAL CONGESTION
     Dosage: 1 TAB PO Q4-6 HOURS
     Route: 048
  2. TRAVATAN [Concomitant]
  3. TRICOR [Concomitant]
  4. SUSTIVA [Concomitant]
  5. ATAZANAVIR [Concomitant]
  6. NORVIR [Concomitant]
  7. TENOFOVIR [Concomitant]

REACTIONS (1)
  - INTRAOCULAR PRESSURE INCREASED [None]
